FAERS Safety Report 5068636-5 (Version None)
Quarter: 2006Q3

REPORT INFORMATION
  Report Type: 
  Country: None (occurrence: None)
  Receive Date: 20060802
  Receipt Date: 20060118
  Transmission Date: 20061208
  Serious: Yes (Other)
  Sender: FDA-Public Use
  Company Number: US-BRISTOL-MYERS SQUIBB COMPANY-13251855

PATIENT
  Sex: Female

DRUGS (2)
  1. COUMADIN [Suspect]
  2. PLAVIX [Suspect]
     Dates: start: 20050101

REACTIONS (3)
  - ABDOMINAL PAIN [None]
  - CEREBROVASCULAR ACCIDENT [None]
  - INTERNATIONAL NORMALISED RATIO FLUCTUATION [None]
